FAERS Safety Report 16647310 (Version 1)
Quarter: 2019Q3

REPORT INFORMATION
  Report Type: Spontaneous
  Country: US (occurrence: US)
  Receive Date: 20190730
  Receipt Date: 20190730
  Transmission Date: 20191004
  Serious: No
  Sender: FDA-Public Use
  Company Number: US-PFIZER INC-2019320763

PATIENT
  Age: 69 Year
  Sex: Male
  Weight: 79.38 kg

DRUGS (8)
  1. LYRICA [Suspect]
     Active Substance: PREGABALIN
     Indication: POST HERPETIC NEURALGIA
     Dosage: 25 MG, 2X/DAY (TWICE A DAY)
     Dates: start: 20181020
  2. LYRICA [Suspect]
     Active Substance: PREGABALIN
     Dosage: 125 MG, DAILY [50MG TWICE A DAY (MORNING AND NIGHT) AND 25MG IN THE MID DAY]
     Dates: start: 201810
  3. PREDNISONE. [Concomitant]
     Active Substance: PREDNISONE
     Indication: CHRONIC OBSTRUCTIVE PULMONARY DISEASE
     Dosage: 20 MG, DAILY (20MG TABLET A DAY)
     Dates: start: 2010
  4. LYRICA [Suspect]
     Active Substance: PREGABALIN
     Dosage: 150 MG, 2X/DAY (TWO 75MG CAPSULES TWICE A DAY)
     Dates: start: 20181126
  5. LYRICA [Suspect]
     Active Substance: PREGABALIN
     Dosage: 75 MG, 2X/DAY (, TWICE A DAY)
     Dates: start: 20181114
  6. LYRICA [Suspect]
     Active Substance: PREGABALIN
     Dosage: 225 MG, DAILY (75 MG, ONCE A DAY (MORNING)  AND 150 MG, ONCE A DAY (AT NIGHT)
     Dates: start: 20181123
  7. RANEXA [Concomitant]
     Active Substance: RANOLAZINE
     Dosage: 500 MG, 2X/DAY
  8. LYRICA [Suspect]
     Active Substance: PREGABALIN
     Dosage: 200 MG, 2X/DAY (TWICE A DAY (ONE CAPSULE IN MORNING AND NIGHT)
     Dates: start: 20181213

REACTIONS (6)
  - Sleep disorder [Unknown]
  - Tremor [Recovering/Resolving]
  - Lethargy [Unknown]
  - Sedation [Recovering/Resolving]
  - Drug ineffective [Unknown]
  - Heart rate decreased [Recovered/Resolved]

NARRATIVE: CASE EVENT DATE: 201810
